FAERS Safety Report 13443679 (Version 1)
Quarter: 2017Q2

REPORT INFORMATION
  Report Type: Spontaneous
  Country: US (occurrence: US)
  Receive Date: 20170413
  Receipt Date: 20170413
  Transmission Date: 20170830
  Serious: No
  Sender: FDA-Public Use
  Company Number: None

PATIENT
  Sex: Female

DRUGS (1)
  1. TALTZ [Suspect]
     Active Substance: IXEKIZUMAB
     Indication: PSORIASIS
     Dosage: FREQUENCY - Q 4 WEEKS
     Route: 058
     Dates: start: 20160916, end: 20170210

REACTIONS (4)
  - Oral pain [None]
  - Dysgeusia [None]
  - Swollen tongue [None]
  - Weight decreased [None]
